FAERS Safety Report 5134131-8 (Version None)
Quarter: 2006Q4

REPORT INFORMATION
  Report Type: 
  Country: None (occurrence: None)
  Receive Date: 20061024
  Receipt Date: 20061012
  Transmission Date: 20070319
  Serious: Yes (Hospitalization, Disabling)
  Sender: FDA-Public Use
  Company Number: CG-MERCK-0610USA10141

PATIENT
  Age: 61 Year
  Sex: Male

DRUGS (1)
  1. STROMECTOL [Suspect]
     Route: 048
     Dates: start: 20060708, end: 20060708

REACTIONS (6)
  - ADVERSE EVENT [None]
  - COMA [None]
  - DIARRHOEA [None]
  - MUSCULOSKELETAL STIFFNESS [None]
  - OCULAR HYPERAEMIA [None]
  - URINARY INCONTINENCE [None]
